FAERS Safety Report 13425411 (Version 1)
Quarter: 2017Q2

REPORT INFORMATION
  Report Type: Spontaneous
  Country: US (occurrence: US)
  Receive Date: 20170411
  Receipt Date: 20170411
  Transmission Date: 20170830
  Serious: No
  Sender: FDA-Public Use
  Company Number: US-TEVA-726068ACC

PATIENT
  Age: 44 Year
  Sex: Female
  Weight: 52 kg

DRUGS (1)
  1. OMEGA-3-ACID ETHYL ESTERS. [Suspect]
     Active Substance: OMEGA-3-ACID ETHYL ESTERS
     Dates: start: 201605, end: 20161229

REACTIONS (1)
  - Pruritus generalised [Unknown]

NARRATIVE: CASE EVENT DATE: 201605
